FAERS Safety Report 4559685-1 (Version None)
Quarter: 2005Q1

REPORT INFORMATION
  Report Type: 
  Country: None (occurrence: None)
  Receive Date: 20050114
  Receipt Date: 20040113
  Transmission Date: 20050727
  Serious: No
  Sender: FDA-Public Use
  Company Number: FEI2004-0014

PATIENT
  Age: 30 Year
  Sex: Female
  Weight: 51.7101 kg

DRUGS (1)
  1. INTRAUTERINE COPPER CONTRACEPTIVE [Suspect]
     Indication: CONTRACEPTION
     Dosage: NA, NA; INTRA-UTERINE
     Route: 015
     Dates: start: 20031230

REACTIONS (2)
  - IUCD COMPLICATION [None]
  - IUD MIGRATION [None]
